FAERS Safety Report 8310609-0 (Version None)
Quarter: 2012Q2

REPORT INFORMATION
  Report Type: 
  Country: None (occurrence: None)
  Receive Date: 20120425
  Receipt Date: 20120425
  Transmission Date: 20120825
  Serious: Yes (Other)
  Sender: FDA-Public Use
  Company Number: None

PATIENT
  Age: 59 Year
  Sex: Male
  Weight: 129.27 kg

DRUGS (2)
  1. PLAVIX [Concomitant]
     Dosage: 75 MG
     Route: 048
     Dates: start: 20120419, end: 20120423
  2. PLAVIX [Suspect]
     Indication: PERIPHERAL VASCULAR DISORDER
     Dosage: 75 MG
     Route: 048
     Dates: start: 20120120, end: 20120320

REACTIONS (4)
  - CONDITION AGGRAVATED [None]
  - RESPIRATORY DISORDER [None]
  - HAEMORRHAGE [None]
  - CONTUSION [None]
